FAERS Safety Report 11717540 (Version 1)
Quarter: 2015Q4

REPORT INFORMATION
  Report Type: Spontaneous
  Country: US (occurrence: US)
  Receive Date: 20151110
  Receipt Date: 20151110
  Transmission Date: 20160304
  Serious: No
  Sender: FDA-Public Use
  Company Number: US-TEVA-597384USA

PATIENT
  Sex: Female

DRUGS (1)
  1. CELECOXIB. [Suspect]
     Active Substance: CELECOXIB
     Route: 065
     Dates: start: 20150919, end: 20150920

REACTIONS (2)
  - Hypersensitivity [Unknown]
  - Rash [Unknown]

NARRATIVE: CASE EVENT DATE: 20150919
